FAERS Safety Report 23613888 (Version 4)
Quarter: 2024Q2

REPORT INFORMATION
  Report Type: Spontaneous
  Country: US (occurrence: US)
  Receive Date: 20240310
  Receipt Date: 20240520
  Transmission Date: 20240716
  Serious: No
  Sender: FDA-Public Use
  Company Number: US-GLAXOSMITHKLINE-US2024AMR028029

PATIENT
  Sex: Female

DRUGS (1)
  1. ZEJULA [Suspect]
     Active Substance: NIRAPARIB
     Indication: Ovarian cancer
     Dosage: 200 MG, QD

REACTIONS (5)
  - Abdominal pain upper [Unknown]
  - Headache [Unknown]
  - Blood test abnormal [Recovering/Resolving]
  - Inappropriate schedule of product administration [Unknown]
  - Product dose omission in error [Unknown]
